FAERS Safety Report 22641502 (Version 1)
Quarter: 2023Q2

REPORT INFORMATION
  Report Type: Spontaneous
  Country: ES (occurrence: ES)
  Receive Date: 20230626
  Receipt Date: 20230626
  Transmission Date: 20230722
  Serious: Yes (Other)
  Sender: FDA-Public Use
  Company Number: None

PATIENT
  Age: 43 Year
  Sex: Female

DRUGS (4)
  1. ADALIMUMAB [Suspect]
     Active Substance: ADALIMUMAB
     Indication: Crohn^s disease
     Dosage: ADALIMUMAB (2906A)
     Route: 058
     Dates: start: 20210609, end: 20220408
  2. AZATHIOPRINE [Concomitant]
     Active Substance: AZATHIOPRINE
     Indication: Crohn^s disease
     Dosage: 50 TABLETS, IMUREL 50 MG COMPRIMIDOS RECUBIERTOS CON PELICULA , 50 COMPRIMIDOS
     Route: 048
     Dates: start: 20200925
  3. BUDESONIDE [Concomitant]
     Active Substance: BUDESONIDE
     Indication: Asthma
     Dosage: INHALATION USE, BUDESONIDA (2291A)
     Route: 065
     Dates: start: 20170502
  4. CYANOCOBALAMIN [Concomitant]
     Active Substance: CYANOCOBALAMIN
     Indication: Anaemia vitamin B12 deficiency
     Dosage: 5 AMPOULES OF 2 ML, OPTOVITE B12 1.000 MICROGRAMOS SOLUCI?N INYECTABLE , 5 AMPOLLAS DE 2 ML
     Route: 030
     Dates: start: 20200717

REACTIONS (2)
  - Musculoskeletal pain [Recovered/Resolved]
  - Face oedema [Recovered/Resolved]

NARRATIVE: CASE EVENT DATE: 20210609
